FAERS Safety Report 15611809 (Version 3)
Quarter: 2019Q2

REPORT INFORMATION
  Report Type: Report from Study
  Country: BR (occurrence: BR)
  Receive Date: 20181113
  Receipt Date: 20190408
  Transmission Date: 20190711
  Serious: Yes (Hospitalization)
  Sender: FDA-Public Use
  Company Number: BR-BIOGEN-2018BI00656914

PATIENT
  Age: 23 Year
  Sex: Female

DRUGS (1)
  1. TECFIDERA [Suspect]
     Active Substance: DIMETHYL FUMARATE
     Indication: MULTIPLE SCLEROSIS
     Route: 050
     Dates: start: 201801

REACTIONS (12)
  - Fall [Recovered/Resolved]
  - Spinal disorder [Not Recovered/Not Resolved]
  - Malaise [Unknown]
  - Multiple sclerosis relapse [Recovered/Resolved]
  - Spinal pain [Not Recovered/Not Resolved]
  - Incontinence [Unknown]
  - Muscle spasms [Not Recovered/Not Resolved]
  - Irritability [Unknown]
  - Arthralgia [Not Recovered/Not Resolved]
  - Burning sensation [Recovered/Resolved]
  - Headache [Unknown]
  - Flushing [Recovered/Resolved]

NARRATIVE: CASE EVENT DATE: 201801
